FAERS Safety Report 15924914 (Version 2)
Quarter: 2019Q1

REPORT INFORMATION
  Report Type: Spontaneous
  Country: US (occurrence: US)
  Receive Date: 20190205
  Receipt Date: 20190219
  Transmission Date: 20190417
  Serious: No
  Sender: FDA-Public Use
  Company Number: US-ALLERGAN-1837635US

PATIENT
  Age: 36 Year
  Sex: Female

DRUGS (1)
  1. BOTOX COSMETIC [Suspect]
     Active Substance: ONABOTULINUMTOXINA
     Indication: SKIN WRINKLING
     Dosage: ACTUAL: 2 UNITS TO EACH CROWS FEET
     Route: 030
     Dates: start: 20180508, end: 20180508

REACTIONS (5)
  - Injection site pruritus [Unknown]
  - Swelling [Unknown]
  - Injection site rash [Unknown]
  - Product preparation error [Unknown]
  - Skin discolouration [Unknown]

NARRATIVE: CASE EVENT DATE: 20180508
